FAERS Safety Report 7518713-1 (Version None)
Quarter: 2011Q2

REPORT INFORMATION
  Report Type: 
  Country: None (occurrence: None)
  Receive Date: 20110602
  Receipt Date: 20110519
  Transmission Date: 20111010
  Serious: Yes (Other)
  Sender: FDA-Public Use
  Company Number: PHHY2011US25339

PATIENT
  Sex: Female

DRUGS (2)
  1. DIOVAN [Suspect]
     Dosage: 160 MG, QD
  2. IODINE [Suspect]

REACTIONS (7)
  - RENAL DISORDER [None]
  - PERIPHERAL COLDNESS [None]
  - LOSS OF CONSCIOUSNESS [None]
  - PAIN IN EXTREMITY [None]
  - FALL [None]
  - RENAL ARTERY STENOSIS [None]
  - INSOMNIA [None]
